FAERS Safety Report 14682123 (Version 1)
Quarter: 2018Q1

REPORT INFORMATION
  Report Type: Spontaneous
  Country: FR (occurrence: FR)
  Receive Date: 20180326
  Receipt Date: 20180326
  Transmission Date: 20180509
  Serious: Yes (Hospitalization, Other)
  Sender: FDA-Public Use
  Company Number: FR-GILEAD-2018-0328173

PATIENT
  Sex: Female
  Weight: 70 kg

DRUGS (16)
  1. AERIUS [Concomitant]
     Active Substance: DESLORATADINE
     Indication: SKIN LESION
     Dosage: 10 IU, BID
     Route: 048
     Dates: start: 20130101, end: 20141101
  2. DERMOVAL                           /00008501/ [Concomitant]
     Active Substance: CLOBETASOL PROPIONATE
     Indication: SKIN LESION
  3. DIPROSONE [Concomitant]
     Active Substance: BETAMETHASONE DIPROPIONATE
     Indication: PRURITUS
     Dosage: 1 DF, QD
     Route: 065
     Dates: start: 20130101, end: 20141101
  4. SOVALDI [Suspect]
     Active Substance: SOFOSBUVIR
     Indication: HEPATITIS C
     Dosage: 400 MG, QD
     Route: 065
     Dates: start: 20140610, end: 20141201
  5. AERIUS [Concomitant]
     Active Substance: DESLORATADINE
     Indication: PRURITUS
  6. LAMICTAL [Concomitant]
     Active Substance: LAMOTRIGINE
     Indication: AFFECTIVE DISORDER
     Dosage: 100 MG, QD
     Route: 065
     Dates: start: 20130101
  7. NAPROXEN. [Concomitant]
     Active Substance: NAPROXEN
     Indication: ARTHRALGIA
     Dosage: 550 UNKNOWN, BID
     Route: 065
  8. DIPROSONE [Concomitant]
     Active Substance: BETAMETHASONE DIPROPIONATE
     Indication: SKIN LESION
  9. CO-RENITEC [Concomitant]
     Active Substance: ENALAPRIL\HYDROCHLOROTHIAZIDE
     Indication: HYPERTENSION
     Dosage: 1 DF, QD
     Route: 065
     Dates: start: 20140101
  10. DACLATASVIR. [Suspect]
     Active Substance: DACLATASVIR
     Indication: HEPATITIS C
     Dosage: 60 MG, QD
     Route: 065
     Dates: start: 20140610, end: 20141201
  11. DEXERYL CREAM [Concomitant]
     Active Substance: GLYCERIN\PARAFFIN
     Indication: SKIN LESION
     Dosage: 1-2 APPLICATIONS, QD
     Route: 065
     Dates: start: 20130101, end: 20141101
  12. DEXERYL CREAM [Concomitant]
     Active Substance: GLYCERIN\PARAFFIN
     Indication: PRURITUS
  13. VENTOLINE                          /00139501/ [Concomitant]
     Active Substance: ALBUTEROL
     Indication: CHRONIC OBSTRUCTIVE PULMONARY DISEASE
     Dosage: 1 PUFF, PRN
     Route: 065
     Dates: start: 20130917
  14. DERMOVAL                           /00008501/ [Concomitant]
     Active Substance: CLOBETASOL PROPIONATE
     Indication: PRURITUS
     Dosage: 1 DF, BID
     Route: 065
     Dates: start: 20130101, end: 20141101
  15. RIBAVIRIN. [Suspect]
     Active Substance: RIBAVIRIN
     Indication: HEPATITIS C
     Dosage: 500 MG, BID
     Route: 048
     Dates: start: 20140610, end: 20140805
  16. INNOVAIR [Concomitant]
     Active Substance: BECLOMETHASONE DIPROPIONATE\FORMOTEROL
     Indication: ASTHMA
     Dosage: 100/6 MCG, PRN
     Route: 065
     Dates: start: 20130917

REACTIONS (9)
  - Choroidal detachment [Recovered/Resolved with Sequelae]
  - Vitreous haemorrhage [Unknown]
  - Diarrhoea [Recovered/Resolved]
  - Retinal exudates [Recovered/Resolved with Sequelae]
  - Subretinal haematoma [Recovered/Resolved with Sequelae]
  - Pyrexia [Recovered/Resolved]
  - Eye haemorrhage [Recovered/Resolved with Sequelae]
  - Retinal detachment [Recovered/Resolved with Sequelae]
  - Intraocular haematoma [Recovered/Resolved with Sequelae]

NARRATIVE: CASE EVENT DATE: 20141001
